FAERS Safety Report 7577122-X (Version None)
Quarter: 2011Q2

REPORT INFORMATION
  Report Type: 
  Country: None (occurrence: None)
  Receive Date: 20110624
  Receipt Date: 20110624
  Transmission Date: 20111010
  Serious: Yes (Other)
  Sender: FDA-Public Use
  Company Number: None

PATIENT
  Age: 48 Year
  Sex: Female
  Weight: 73.0291 kg

DRUGS (1)
  1. ZOCOR [Suspect]
     Indication: BLOOD CHOLESTEROL INCREASED
     Dosage: 10MG 1 NIGHT
     Dates: start: 20110606, end: 20110615

REACTIONS (10)
  - MUSCULOSKELETAL PAIN [None]
  - RASH [None]
  - ACTIVITIES OF DAILY LIVING IMPAIRED [None]
  - NO THERAPEUTIC RESPONSE [None]
  - PAIN IN EXTREMITY [None]
  - SKIN BURNING SENSATION [None]
  - ASTHENIA [None]
  - SKIN ULCER [None]
  - PAIN [None]
  - FEELING ABNORMAL [None]
